FAERS Safety Report 15883168 (Version 1)
Quarter: 2019Q1

REPORT INFORMATION
  Report Type: Report from Study
  Country: US (occurrence: US)
  Receive Date: 20190129
  Receipt Date: 20190129
  Transmission Date: 20190417
  Serious: Yes (Death)
  Sender: FDA-Public Use
  Company Number: US-BEH-2019098765

PATIENT
  Age: 85 Year
  Sex: Female

DRUGS (1)
  1. HUMAN IMMUNOGLOBULIN IV (GENERIC) [Suspect]
     Active Substance: HUMAN IMMUNOGLOBULIN G
     Indication: SECONDARY CEREBELLAR DEGENERATION
     Dosage: 2000 MG/KG, OVER 3-5 DAYS
     Route: 042

REACTIONS (1)
  - Drug ineffective for unapproved indication [Fatal]
